FAERS Safety Report 7095206-X (Version None)
Quarter: 2010Q4

REPORT INFORMATION
  Report Type: 
  Country: None (occurrence: None)
  Receive Date: 20101103
  Receipt Date: 20101019
  Transmission Date: 20110411
  Serious: Yes (Hospitalization)
  Sender: FDA-Public Use
  Company Number: SPI201000267

PATIENT

DRUGS (1)
  1. AMITIZA [Suspect]
     Dosage: ORAL
     Route: 048

REACTIONS (1)
  - PANCREATITIS [None]
